FAERS Safety Report 5938179-2 (Version None)
Quarter: 2008Q4

REPORT INFORMATION
  Report Type: 
  Country: None (occurrence: None)
  Receive Date: 20081031
  Receipt Date: 20081021
  Transmission Date: 20090506
  Serious: Yes (Other)
  Sender: FDA-Public Use
  Company Number: US-PFIZER INC-2008088895

PATIENT
  Sex: Female
  Weight: 113.63 kg

DRUGS (13)
  1. TIKOSYN [Suspect]
     Indication: ATRIAL FIBRILLATION
     Route: 048
     Dates: start: 20080701
  2. CARDURA [Concomitant]
  3. LASIX [Concomitant]
  4. ATENOLOL [Concomitant]
  5. LEVOXYL [Concomitant]
  6. METFORMIN HCL [Concomitant]
  7. CUMADIN [Concomitant]
  8. CALCIUM [Concomitant]
  9. DIGOXIN [Concomitant]
  10. POTASSIUM CHLORIDE [Concomitant]
  11. VALTREX [Concomitant]
  12. IRON [Concomitant]
  13. MULTI-VITAMINS [Concomitant]

REACTIONS (2)
  - INTERNATIONAL NORMALISED RATIO DECREASED [None]
  - WEIGHT ABNORMAL [None]
